FAERS Safety Report 9312496 (Version 1)
Quarter: 2013Q2

REPORT INFORMATION
  Report Type: Spontaneous
  Country: US (occurrence: US)
  Receive Date: 20130528
  Receipt Date: 20130528
  Transmission Date: 20140414
  Serious: Yes (Other)
  Sender: FDA-Public Use
  Company Number: US-BAYER-2013-063678

PATIENT
  Age: 2 Year
  Sex: Male
  Weight: 14 kg

DRUGS (1)
  1. MIDOL MENSTRUAL COMPLETE FORMULA [Suspect]
     Dosage: 15 DF, ONCE
     Route: 048
     Dates: start: 20130519, end: 20130519

REACTIONS (3)
  - Failure of child resistant mechanism for pharmaceutical product [None]
  - Accidental exposure to product by child [None]
  - Overdose [None]
